FAERS Safety Report 6685731-5 (Version None)
Quarter: 2010Q2

REPORT INFORMATION
  Report Type: 
  Country: None (occurrence: None)
  Receive Date: 20100419
  Receipt Date: 20100406
  Transmission Date: 20101027
  Serious: Yes (Hospitalization)
  Sender: FDA-Public Use
  Company Number: US-RANBAXY-2010RR-32684

PATIENT
  Age: 14 Year
  Sex: Male

DRUGS (1)
  1. VERAPAMIL [Suspect]
     Dosage: 180 MG, UNK
     Route: 048

REACTIONS (2)
  - LACTIC ACIDOSIS [None]
  - OVERDOSE [None]
